FAERS Safety Report 6759724-3 (Version None)
Quarter: 2010Q2

REPORT INFORMATION
  Report Type: 
  Country: None (occurrence: None)
  Receive Date: 20100604
  Receipt Date: 20100525
  Transmission Date: 20101027
  Serious: Yes (Hospitalization)
  Sender: FDA-Public Use
  Company Number: 012662

PATIENT
  Age: 59 Year
  Sex: Female

DRUGS (3)
  1. NEUPRO [Suspect]
     Dosage: (TRANSDERMAL)
     Route: 062
     Dates: start: 20100429
  2. GRUNCEF (GRUNCEF) [Suspect]
     Indication: NEUROBORRELIOSIS
     Dates: start: 20100205, end: 20100225
  3. AZILECT [Concomitant]

REACTIONS (4)
  - DRUG INTERACTION [None]
  - GROIN PAIN [None]
  - HYPOTHYROIDISM [None]
  - PAIN IN EXTREMITY [None]
